FAERS Safety Report 10105583 (Version 1)
Quarter: 2014Q2

REPORT INFORMATION
  Report Type: Other
  Country: None (occurrence: US)
  Receive Date: 20140424
  Receipt Date: 20140424
  Transmission Date: 20141212
  Serious: Yes (Death, Other)
  Sender: FDA-Public Use
  Company Number: US-GSKPPD-2014GSK002124

PATIENT
  Sex: 0

DRUGS (1)
  1. AVANDIA [Suspect]
     Indication: DIABETES MELLITUS
     Route: 048

REACTIONS (6)
  - Myocardial infarction [None]
  - Atrial fibrillation [None]
  - Cardiac failure congestive [None]
  - Coronary artery stenosis [None]
  - Atrioventricular block [None]
  - Death [None]
